FAERS Safety Report 21611863 (Version 5)
Quarter: 2024Q2

REPORT INFORMATION
  Report Type: Report from Study
  Country: US (occurrence: US)
  Receive Date: 20221117
  Receipt Date: 20240612
  Transmission Date: 20240716
  Serious: Yes (Hospitalization, Other)
  Sender: FDA-Public Use
  Company Number: US-ABBVIE-4204752

PATIENT
  Age: 73 Year
  Sex: Female
  Weight: 79 kg

DRUGS (2)
  1. HUMIRA [Suspect]
     Active Substance: ADALIMUMAB
     Indication: Psoriatic arthropathy
     Dosage: CITRATE FREE
     Route: 058
  2. HUMIRA [Suspect]
     Active Substance: ADALIMUMAB
     Dosage: 40 (UNITS UNKNOWN)
     Route: 058

REACTIONS (4)
  - Decreased appetite [Not Recovered/Not Resolved]
  - Dehydration [Recovering/Resolving]
  - Diarrhoea [Not Recovered/Not Resolved]
  - Myocardial necrosis marker increased [Unknown]

NARRATIVE: CASE EVENT DATE: 20221020
